FAERS Safety Report 5673050-5 (Version None)
Quarter: 2008Q1

REPORT INFORMATION
  Report Type: 
  Country: None (occurrence: None)
  Receive Date: 20080319
  Receipt Date: 20080110
  Transmission Date: 20080703
  Serious: No
  Sender: FDA-Public Use
  Company Number: US-ASTRAZENECA-2008UW00761

PATIENT
  Age: 58 Year
  Sex: Female
  Weight: 167.8 kg

DRUGS (6)
  1. SYMBICORT [Suspect]
     Dosage: 80/4.5 UG, TWO PUFFS BID
     Route: 055
     Dates: start: 20071001
  2. SYMBICORT [Suspect]
     Dosage: 80/4.5 UG, TWO PUFFS BID
     Route: 055
     Dates: start: 20080106
  3. ATENOLOL [Concomitant]
  4. PROAIR HFA [Concomitant]
  5. HFA [Concomitant]
  6. ASPIRIN [Concomitant]

REACTIONS (1)
  - EPISTAXIS [None]
